FAERS Safety Report 5165188-6 (Version None)
Quarter: 2006Q4

REPORT INFORMATION
  Report Type: 
  Country: None (occurrence: None)
  Receive Date: 20061124
  Receipt Date: 20061109
  Transmission Date: 20070319
  Serious: Yes (Other)
  Sender: FDA-Public Use
  Company Number: S06-SWI-04878-01

PATIENT
  Age: 61 Year
  Sex: Female

DRUGS (1)
  1. CITALOPRAM HYDROBROMIDE [Suspect]
     Indication: DEPRESSION
     Dosage: 8 MG QD PO
     Route: 048
     Dates: start: 20050702, end: 20060501

REACTIONS (5)
  - ANXIETY [None]
  - CORNEAL DISORDER [None]
  - DYSTHYMIC DISORDER [None]
  - INSOMNIA [None]
  - OPEN ANGLE GLAUCOMA [None]
